FAERS Safety Report 23182313 (Version 1)
Quarter: 2023Q4

REPORT INFORMATION
  Report Type: Report from Study
  Country: CA (occurrence: CA)
  Receive Date: 20231114
  Receipt Date: 20231114
  Transmission Date: 20240110
  Serious: Yes (Hospitalization, Other)
  Sender: FDA-Public Use
  Company Number: CA-PFIZER INC-202300361434

PATIENT
  Age: 54 Year
  Sex: Male

DRUGS (4)
  1. FLUCONAZOLE [Interacting]
     Active Substance: FLUCONAZOLE
     Indication: Candida infection
     Dosage: UNK
  2. IMBRUVICA [Interacting]
     Active Substance: IBRUTINIB
     Indication: Central nervous system lymphoma
     Dosage: UNK, 1X/DAY
     Route: 048
  3. IMBRUVICA [Interacting]
     Active Substance: IBRUTINIB
     Dosage: 560 MG, 1X/DAY
     Route: 048
  4. IMBRUVICA [Interacting]
     Active Substance: IBRUTINIB
     Dosage: UNK, 1X/DAY
     Route: 048

REACTIONS (5)
  - Drug interaction [Recovering/Resolving]
  - Pneumonia [Recovering/Resolving]
  - Toxicity to various agents [Recovering/Resolving]
  - Candida infection [Recovering/Resolving]
  - Off label use [Unknown]
